FAERS Safety Report 7215230-3 (Version None)
Quarter: 2011Q1

REPORT INFORMATION
  Report Type: 
  Country: None (occurrence: None)
  Receive Date: 20110107
  Receipt Date: 20101227
  Transmission Date: 20110831
  Serious: Yes (Hospitalization, Other)
  Sender: FDA-Public Use
  Company Number: PHHY2010JP85840

PATIENT
  Age: 3 Year
  Sex: Female

DRUGS (3)
  1. PREDONINE [Concomitant]
     Indication: COMBINED IMMUNODEFICIENCY
  2. DEXAMETHASONE [Concomitant]
     Indication: COMBINED IMMUNODEFICIENCY
  3. CYCLOSPORINE [Suspect]
     Indication: COMBINED IMMUNODEFICIENCY

REACTIONS (6)
  - BONE MARROW TRANSPLANT [None]
  - HEPATIC FUNCTION ABNORMAL [None]
  - ANAEMIA HAEMOLYTIC AUTOIMMUNE [None]
  - CYTOMEGALOVIRUS HEPATITIS [None]
  - COMBINED IMMUNODEFICIENCY [None]
  - INTERSTITIAL LUNG DISEASE [None]
